FAERS Safety Report 5968923-X (Version None)
Quarter: 2008Q4

REPORT INFORMATION
  Report Type: 
  Country: None (occurrence: None)
  Receive Date: 20081125
  Receipt Date: 20081125
  Transmission Date: 20090506
  Serious: Yes (Life-Threatening)
  Sender: FDA-Public Use
  Company Number: None

PATIENT
  Age: 55 Year
  Sex: Female
  Weight: 90.7194 kg

DRUGS (2)
  1. FENTANYL [Suspect]
     Indication: BACK PAIN
     Dosage: 1 PATCH EVERY 2 DAYS TRANSDERMAL
     Route: 062
     Dates: start: 20070301, end: 20081101
  2. FENTANYL [Suspect]
     Indication: FIBROMYALGIA
     Dosage: 1 PATCH EVERY 2 DAYS TRANSDERMAL
     Route: 062
     Dates: start: 20070301, end: 20081101

REACTIONS (2)
  - DYSPNOEA [None]
  - PALPITATIONS [None]
